FAERS Safety Report 7749296-9 (Version None)
Quarter: 2011Q3

REPORT INFORMATION
  Report Type: 
  Country: None (occurrence: None)
  Receive Date: 20110914
  Receipt Date: 20110909
  Transmission Date: 20111222
  Serious: Yes (Death)
  Sender: FDA-Public Use
  Company Number: US-ASTELLAS-2011US004553

PATIENT
  Sex: Male

DRUGS (1)
  1. ERLOTINIB HYDROCHLORIDE [Suspect]
     Indication: LUNG CARCINOMA CELL TYPE UNSPECIFIED STAGE 0
     Dosage: 100 MG, UID/QD
     Route: 048
     Dates: start: 20110712

REACTIONS (7)
  - RASH [None]
  - DRY SKIN [None]
  - EYE PRURITUS [None]
  - DRY EYE [None]
  - NAIL DISORDER [None]
  - SKIN FISSURES [None]
  - DEATH [None]
